FAERS Safety Report 19002995 (Version 9)
Quarter: 2021Q2

REPORT INFORMATION
  Report Type: Report from Study
  Country: US (occurrence: US)
  Receive Date: 20210312
  Receipt Date: 20210525
  Transmission Date: 20210717
  Serious: Yes (Hospitalization)
  Sender: FDA-Public Use
  Company Number: US-ASTELLAS-2021US008872

PATIENT
  Age: 46 Year
  Sex: Female

DRUGS (2)
  1. ASG?22CE [Suspect]
     Active Substance: ENFORTUMAB VEDOTIN
     Indication: BREAST CANCER
     Dosage: 97 MG, CYCLIC 1 (D1, D8 AND D15)
     Route: 042
     Dates: start: 20210216, end: 20210302
  2. ASG?22CE [Suspect]
     Active Substance: ENFORTUMAB VEDOTIN
     Dosage: 77 MG, CYCLIC 2 (D1, D8 AND D15)
     Route: 042
     Dates: start: 20210322

REACTIONS (6)
  - Paraesthesia [Recovered/Resolved]
  - Vomiting [Recovered/Resolved]
  - Nausea [Recovered/Resolved]
  - Nausea [Recovered/Resolved]
  - Vomiting [Recovered/Resolved]
  - Abdominal pain [Recovered/Resolved]

NARRATIVE: CASE EVENT DATE: 20210309
